FAERS Safety Report 9271326 (Version 2)
Quarter: 2013Q2

REPORT INFORMATION
  Report Type: Report from Study
  Country: US (occurrence: US)
  Receive Date: 20130506
  Receipt Date: 20130508
  Transmission Date: 20140414
  Serious: Yes (Hospitalization)
  Sender: FDA-Public Use
  Company Number: PHEH2013US009648

PATIENT
  Age: 38 Year
  Sex: Female

DRUGS (2)
  1. GILENYA [Suspect]
     Indication: MULTIPLE SCLEROSIS
     Dosage: 0.5 MG, QD
     Route: 048
     Dates: start: 20130429
  2. BUPROPION [Suspect]
     Indication: DEPRESSION

REACTIONS (5)
  - Atrioventricular dissociation [Recovering/Resolving]
  - Nodal rhythm [Recovering/Resolving]
  - Heart rate decreased [Recovering/Resolving]
  - Electrocardiogram QT prolonged [Recovering/Resolving]
  - Sinus arrhythmia [Recovering/Resolving]
